FAERS Safety Report 8165201-8 (Version None)
Quarter: 2012Q1

REPORT INFORMATION
  Report Type: 
  Country: None (occurrence: None)
  Receive Date: 20120227
  Receipt Date: 20120223
  Transmission Date: 20120608
  Serious: No
  Sender: FDA-Public Use
  Company Number: US-PFIZER INC-2012049582

PATIENT
  Sex: Female
  Weight: 68 kg

DRUGS (10)
  1. PROTONIX [Concomitant]
     Indication: GASTRIC DISORDER
     Dosage: 10 MG, DAILY
  2. PROZAC [Concomitant]
     Indication: MENTAL DISORDER
     Dosage: 20 MG, 2X/DAY
  3. SYNTHROID [Concomitant]
     Indication: HYPOTHYROIDISM
     Dosage: 125 UG, DAILY
  4. CHANTIX [Suspect]
     Indication: SMOKING CESSATION THERAPY
     Dosage: UNK
     Route: 048
     Dates: start: 20100101, end: 20100701
  5. VALIUM [Concomitant]
     Indication: MENTAL DISORDER
     Dosage: 5 MG, 3X/DAY
  6. METFORMIN [Concomitant]
     Indication: DIABETES MELLITUS
     Dosage: 500 MG, 2X/DAY
  7. ACCUPRIL [Concomitant]
     Indication: HYPERTENSION
     Dosage: 30 MG, 2X/DAY
  8. ADVAIR DISKUS 100/50 [Concomitant]
     Indication: ASTHMA
     Dosage: 500/50MCG, 2X/DAY
  9. VITAMIN TAB [Concomitant]
     Dosage: UNK
  10. SINGULAIR [Concomitant]
     Indication: ASTHMA
     Dosage: 10 MG, DAILY

REACTIONS (2)
  - ABDOMINAL PAIN UPPER [None]
  - VOMITING [None]
